FAERS Safety Report 8239825-3 (Version None)
Quarter: 2012Q1

REPORT INFORMATION
  Report Type: 
  Country: None (occurrence: None)
  Receive Date: 20120328
  Receipt Date: 20120320
  Transmission Date: 20120608
  Serious: Yes (Other)
  Sender: FDA-Public Use
  Company Number: PHEH2012US002248

PATIENT
  Sex: Female

DRUGS (8)
  1. AMOXICILLIN [Suspect]
     Dosage: 500 MG, BID
  2. ASPIRIN [Concomitant]
  3. NUTRITION SUPPLEMENTS [Concomitant]
  4. EXELON [Suspect]
     Dosage: 4.6 MG/24 HOURS
     Route: 062
  5. CALCIUM CARBONATE [Concomitant]
  6. VITAMINS NOS [Concomitant]
  7. CRESTOR [Concomitant]
     Dosage: 20 MG, UNK
  8. FOLIC ACID [Concomitant]

REACTIONS (6)
  - ARTHRITIS [None]
  - MUSCULOSKELETAL PAIN [None]
  - CYSTITIS [None]
  - ARTHRALGIA [None]
  - FEELING ABNORMAL [None]
  - FATIGUE [None]
